FAERS Safety Report 15349261 (Version 3)
Quarter: 2018Q4

REPORT INFORMATION
  Report Type: Spontaneous
  Country: US (occurrence: US)
  Receive Date: 20180904
  Receipt Date: 20181022
  Transmission Date: 20190204
  Serious: Yes (Hospitalization, Other)
  Sender: FDA-Public Use
  Company Number: US-GLAXOSMITHKLINE-US2018157079

PATIENT
  Age: 82 Year
  Sex: Female

DRUGS (1)
  1. ADVAIR DISKUS [Suspect]
     Active Substance: FLUTICASONE PROPIONATE\SALMETEROL XINAFOATE
     Indication: CHRONIC OBSTRUCTIVE PULMONARY DISEASE
     Dosage: UNK
     Route: 055

REACTIONS (8)
  - Urinary tract infection [Recovering/Resolving]
  - Myocardial infarction [Recovered/Resolved]
  - Fractured sacrum [Recovered/Resolved]
  - Pneumonia [Recovering/Resolving]
  - Epistaxis [Recovering/Resolving]
  - Bronchitis [Recovered/Resolved with Sequelae]
  - Product use issue [Unknown]
  - Fall [Recovered/Resolved]

NARRATIVE: CASE EVENT DATE: 201610
